FAERS Safety Report 7312555-8 (Version None)
Quarter: 2011Q1

REPORT INFORMATION
  Report Type: 
  Country: None (occurrence: None)
  Receive Date: 20110224
  Receipt Date: 20110222
  Transmission Date: 20110831
  Serious: Yes (Death)
  Sender: FDA-Public Use
  Company Number: GXKR2010GB06369

PATIENT
  Age: 28 Year
  Sex: Male
  Weight: 101 kg

DRUGS (8)
  1. OXYCODONE HYDROCHLORIDE [Suspect]
     Indication: TOOTHACHE
  2. ZOPICLONE [Suspect]
  3. DIHYDROCODEINE BITARTRATE [Suspect]
     Indication: TOOTHACHE
  4. DIAZEPAM [Suspect]
     Route: 065
  5. NORDAZEPAM [Suspect]
  6. NAPROXEN [Suspect]
  7. NORTRIPTYLINE [Suspect]
  8. AMITRIPTYLINE HCL [Suspect]

REACTIONS (2)
  - RESPIRATORY DEPRESSION [None]
  - ACCIDENTAL OVERDOSE [None]
